FAERS Safety Report 9092341 (Version 1)
Quarter: 2013Q1

REPORT INFORMATION
  Report Type: Report from Study
  Country: US (occurrence: US)
  Receive Date: 20130131
  Receipt Date: 20130131
  Transmission Date: 20140127
  Serious: No
  Sender: FDA-Public Use
  Company Number: US-ABBOTT-12P-163-0990706-00

PATIENT
  Age: 58 Year
  Sex: Female

DRUGS (3)
  1. HUMIRA [Suspect]
     Indication: RHEUMATOID ARTHRITIS
     Dates: start: 201208
  2. ALPHAGAN [Concomitant]
     Indication: EYE DISORDER
     Dosage: BOTH EYES DAILY
     Route: 047
  3. RESTASIS [Concomitant]
     Indication: EYE DISORDER
     Dosage: BOTH EYES DAILY
     Route: 047

REACTIONS (3)
  - Ocular hyperaemia [Not Recovered/Not Resolved]
  - Ocular hyperaemia [Not Recovered/Not Resolved]
  - Vision blurred [Not Recovered/Not Resolved]
